FAERS Safety Report 19441777 (Version 1)
Quarter: 2021Q2

REPORT INFORMATION
  Report Type: Spontaneous
  Country: US (occurrence: US)
  Receive Date: 20210618
  Receipt Date: 20210618
  Transmission Date: 20210717
  Serious: Yes (Life-Threatening, Hospitalization, Disabling)
  Sender: FDA-Public Use
  Company Number: None

PATIENT
  Age: 77 Year
  Sex: Male
  Weight: 118.8 kg

DRUGS (21)
  1. EPOETIN ALFA?EPBXXX (RETACRIT ) [Concomitant]
  2. ALBUTEROL. [Concomitant]
     Active Substance: ALBUTEROL
  3. OPSUMIT [Concomitant]
     Active Substance: MACITENTAN
  4. ASPIRIN 81MG EC TABLET [Concomitant]
  5. FENOFIBRIC ACID. [Concomitant]
     Active Substance: FENOFIBRIC ACID
  6. TYVASO [Concomitant]
     Active Substance: TREPROSTINIL
  7. VITAMIN D [Concomitant]
     Active Substance: VITAMIN D NOS
  8. COENZYME Q10 [Concomitant]
     Active Substance: DIETARY SUPPLEMENT\UBIDECARENONE
  9. TESTOSTERONE CYPIONATE. [Concomitant]
     Active Substance: TESTOSTERONE CYPIONATE
  10. HYDROCODONE?ACETAMINOPHEN [Concomitant]
     Active Substance: ACETAMINOPHEN\HYDROCODONE
  11. METFORMIN [Concomitant]
     Active Substance: METFORMIN HYDROCHLORIDE
  12. SILDENAFIL. [Concomitant]
     Active Substance: SILDENAFIL
  13. SPIRONOLACTONE. [Concomitant]
     Active Substance: SPIRONOLACTONE
  14. ROSUVASTATIN. [Concomitant]
     Active Substance: ROSUVASTATIN
  15. LUPRON [Suspect]
     Active Substance: LEUPROLIDE ACETATE
  16. CHOLINE [Concomitant]
     Active Substance: CHOLINE
  17. CALCIUM [Concomitant]
     Active Substance: CALCIUM
  18. IPRATROPIUM [Concomitant]
     Active Substance: IPRATROPIUM
  19. LOPERAMIDE [Concomitant]
     Active Substance: LOPERAMIDE
  20. FUROSEMIDE. [Concomitant]
     Active Substance: FUROSEMIDE
  21. CARVEDILOL. [Concomitant]
     Active Substance: CARVEDILOL

REACTIONS (7)
  - Red blood cell count decreased [None]
  - Incontinence [None]
  - Dysstasia [None]
  - Male genital atrophy [None]
  - Hypogonadism male [None]
  - Pulmonary arterial hypertension [None]
  - Wheelchair user [None]

NARRATIVE: CASE EVENT DATE: 20180615
